FAERS Safety Report 7998029-X (Version None)
Quarter: 2011Q4

REPORT INFORMATION
  Report Type: 
  Country: None (occurrence: None)
  Receive Date: 20111221
  Receipt Date: 20101202
  Transmission Date: 20120403
  Serious: No
  Sender: FDA-Public Use
  Company Number: US-GLAXOSMITHKLINE-A0897406A

PATIENT
  Age: 58 Year
  Sex: Male

DRUGS (2)
  1. RED YEAST RICE [Concomitant]
     Indication: SUPPLEMENTATION THERAPY
  2. LOVAZA [Suspect]
     Indication: BLOOD TRIGLYCERIDES INCREASED
     Dosage: 1CAP FOUR TIMES PER DAY
     Route: 048
     Dates: start: 20100101

REACTIONS (1)
  - BACK PAIN [None]
